FAERS Safety Report 6440545-6 (Version None)
Quarter: 2009Q4

REPORT INFORMATION
  Report Type: 
  Country: None (occurrence: None)
  Receive Date: 20091113
  Receipt Date: 20091103
  Transmission Date: 20100525
  Serious: Yes (Hospitalization)
  Sender: FDA-Public Use
  Company Number: US-ELI_LILLY_AND_COMPANY-US200907004561

PATIENT
  Sex: Female

DRUGS (8)
  1. FORTEO [Suspect]
     Dosage: UNK, UNK
     Dates: start: 20090201
  2. POTASSIUM CHLORIDE [Concomitant]
  3. LYRICA [Concomitant]
  4. VITAMINS NOS [Concomitant]
  5. VICODIN [Concomitant]
     Indication: PAIN
  6. ANTIHYPERTENSIVES [Concomitant]
  7. BUMEX [Concomitant]
  8. CALCIUM                                 /N/A/ [Concomitant]

REACTIONS (3)
  - DRY SKIN [None]
  - OSTEOPOROSIS [None]
  - POSTOPERATIVE WOUND INFECTION [None]
